FAERS Safety Report 8541327-1 (Version None)
Quarter: 2012Q3

REPORT INFORMATION
  Report Type: 
  Country: None (occurrence: None)
  Receive Date: 20120726
  Receipt Date: 20110921
  Transmission Date: 20120928
  Serious: No
  Sender: FDA-Public Use
  Company Number: US-ASTRAZENECA-2011SE56710

PATIENT
  Age: 44 Year
  Sex: Male
  Weight: 108.9 kg

DRUGS (3)
  1. CELEXA [Concomitant]
     Indication: BIPOLAR DISORDER
  2. SEROQUEL XR [Suspect]
     Indication: SLEEP DISORDER
     Route: 048
  3. SEROQUEL XR [Suspect]
     Indication: MOOD ALTERED
     Route: 048

REACTIONS (4)
  - INSOMNIA [None]
  - DRUG DOSE OMISSION [None]
  - OFF LABEL USE [None]
  - HALLUCINATION [None]
